FAERS Safety Report 7958691-4 (Version None)
Quarter: 2011Q4

REPORT INFORMATION
  Report Type: 
  Country: None (occurrence: None)
  Receive Date: 20111206
  Receipt Date: 20111130
  Transmission Date: 20120403
  Serious: Yes (Other)
  Sender: FDA-Public Use
  Company Number: NO-TEVA-310612ISR

PATIENT
  Age: 73 Year
  Sex: Female

DRUGS (1)
  1. ALENDRONIC ACID [Suspect]
     Indication: OSTEOPOROSIS

REACTIONS (5)
  - FEMUR FRACTURE [None]
  - FEMORAL NECK FRACTURE [None]
  - PAIN IN EXTREMITY [None]
  - OSTEOPENIA [None]
  - ULNA FRACTURE [None]
